FAERS Safety Report 9291267 (Version 1)
Quarter: 2013Q2

REPORT INFORMATION
  Report Type: Report from Study
  Country: CL (occurrence: CL)
  Receive Date: 20130515
  Receipt Date: 20130515
  Transmission Date: 20140414
  Serious: Yes (Death, Hospitalization)
  Sender: FDA-Public Use
  Company Number: PHHY2013CL048253

PATIENT
  Age: 88 Year
  Sex: Female

DRUGS (3)
  1. TAREG D [Suspect]
     Indication: HYPERTENSION
     Dosage: 1 DF (VALS 80 MG, HYDR 12.5 MG), QD
     Route: 048
  2. NEO-SINTROM [Concomitant]
     Indication: ANTICOAGULANT THERAPY
     Dosage: UNK UKN, UNK
  3. ATLANSIL//AMIODARONE [Concomitant]
     Indication: ARRHYTHMIA
     Dosage: UNK UKN, UNK

REACTIONS (6)
  - Myocardial infarction [Fatal]
  - Cardiac failure [Fatal]
  - Abdominal pain upper [Fatal]
  - Back pain [Fatal]
  - Dehydration [Fatal]
  - Hypotension [Fatal]
